FAERS Safety Report 25763259 (Version 1)
Quarter: 2025Q3

REPORT INFORMATION
  Report Type: Spontaneous
  Country: GB (occurrence: GB)
  Receive Date: 20250905
  Receipt Date: 20250905
  Transmission Date: 20251020
  Serious: Yes (Life-Threatening, Other)
  Sender: GLAXOSMITHKLINE
  Company Number: None

PATIENT
  Age: 89 Year
  Sex: Female
  Weight: 44 kg

DRUGS (2)
  1. JEMPERLI [Suspect]
     Active Substance: DOSTARLIMAB-GXLY
     Indication: Colorectal cancer
     Dosage: 500 MG, Q3W (500 MG EVERY THREE WEEKS)
     Route: 065
  2. JEMPERLI [Suspect]
     Active Substance: DOSTARLIMAB-GXLY
     Indication: Microsatellite instability cancer

REACTIONS (3)
  - Myocarditis [Not Recovered/Not Resolved]
  - Immune-mediated hepatitis [Unknown]
  - Hepatitis [Unknown]

NARRATIVE: CASE EVENT DATE: 20250218
